FAERS Safety Report 13093547 (Version 1)
Quarter: 2017Q1

REPORT INFORMATION
  Report Type: Other
  Country: IT (occurrence: IT)
  Receive Date: 20170106
  Receipt Date: 20170106
  Transmission Date: 20170428
  Serious: Yes (Other)
  Sender: FDA-Public Use
  Company Number: IT-CELLTRION INC.-2016IT014313

PATIENT

DRUGS (4)
  1. REMSIMA [Suspect]
     Active Substance: INFLIXIMAB
     Dosage: 400 MG, CYCLIC
     Route: 042
     Dates: start: 20151123, end: 20151123
  2. REMSIMA [Suspect]
     Active Substance: INFLIXIMAB
     Indication: ANKYLOSING SPONDYLITIS
     Dosage: 400 MG, CYCLIC
     Route: 042
     Dates: start: 20150817, end: 20150817
  3. CELEBREX [Concomitant]
     Active Substance: CELECOXIB
     Indication: FASCIITIS
     Dosage: CELEBREX 200 MG 10 RIGID CAPSULES IN ALUMINIUM/PVC TRANSPARENT BLISTER
  4. SICCAFLUID [Concomitant]
     Indication: DRY EYE
     Dosage: SICCAFLUID 2,5 MG/G EYE GEL, 10 MG FLASK
     Route: 047

REACTIONS (2)
  - Drug ineffective [Unknown]
  - Fasciitis [Recovering/Resolving]

NARRATIVE: CASE EVENT DATE: 20160111
